FAERS Safety Report 17334322 (Version 1)
Quarter: 2020Q1

REPORT INFORMATION
  Report Type: Spontaneous
  Country: IN (occurrence: IN)
  Receive Date: 20200128
  Receipt Date: 20200128
  Transmission Date: 20200409
  Serious: Yes (Other)
  Sender: FDA-Public Use
  Company Number: IN-FRESENIUS KABI-FK202000868

PATIENT
  Age: 63 Year
  Sex: Female

DRUGS (4)
  1. ATROPINE (MANUFACTURER UNKNOWN) [Suspect]
     Active Substance: ATROPINE
     Indication: ANGLE CLOSURE GLAUCOMA
     Route: 065
  2. ATROPINE (MANUFACTURER UNKNOWN) [Suspect]
     Active Substance: ATROPINE
     Route: 065
  3. ANTIGLAUCOMA MEDICATION [Concomitant]
     Indication: ANGLE CLOSURE GLAUCOMA
     Route: 065
  4. STEROIDS [Concomitant]
     Active Substance: UNSPECIFIED INGREDIENT
     Indication: ANGLE CLOSURE GLAUCOMA
     Route: 065

REACTIONS (2)
  - Vision blurred [Recovered/Resolved]
  - Visual impairment [Recovered/Resolved]
